FAERS Safety Report 12577273 (Version 1)
Quarter: 2016Q3

REPORT INFORMATION
  Report Type: Spontaneous
  Country: US (occurrence: US)
  Receive Date: 20160720
  Receipt Date: 20160720
  Transmission Date: 20161109
  Serious: No
  Sender: FDA-Public Use
  Company Number: US-PERRIGO-15US013072

PATIENT
  Age: 70 Year
  Sex: Female

DRUGS (1)
  1. MICONAZOLE 1 [Suspect]
     Active Substance: MICONAZOLE NITRATE
     Indication: VULVOVAGINAL MYCOTIC INFECTION
     Dosage: 1200 MG, SINGLE
     Route: 067
     Dates: start: 20151209, end: 20151209

REACTIONS (5)
  - Drug ineffective [Unknown]
  - Underdose [Recovered/Resolved]
  - Expulsion of medication [None]
  - Accidental underdose [None]
  - Product solubility abnormal [None]

NARRATIVE: CASE EVENT DATE: 20151209
